FAERS Safety Report 23576636 (Version 1)
Quarter: 2024Q1

REPORT INFORMATION
  Report Type: Spontaneous
  Country: US (occurrence: None)
  Receive Date: 20240228
  Receipt Date: 20240228
  Transmission Date: 20240410
  Serious: Yes (Hospitalization)
  Sender: FDA-Public Use
  Company Number: None

PATIENT
  Age: 8 Month
  Sex: Male
  Weight: 7.65 kg

DRUGS (1)
  1. MIRALAX [Suspect]
     Active Substance: POLYETHYLENE GLYCOL 3350
     Indication: Gastrointestinal disorder
     Dosage: OTHER QUANTITY : 1 TEASPOON(S);?
     Route: 048
     Dates: start: 20240213, end: 20240218

REACTIONS (4)
  - Diarrhoea [None]
  - Tremor [None]
  - Psychomotor disadaptation syndrome [None]
  - Therapy cessation [None]

NARRATIVE: CASE EVENT DATE: 20240220
